FAERS Safety Report 8103076-3 (Version None)
Quarter: 2012Q1

REPORT INFORMATION
  Report Type: 
  Country: None (occurrence: None)
  Receive Date: 20120201
  Receipt Date: 20120201
  Transmission Date: 20120608
  Serious: No
  Sender: FDA-Public Use
  Company Number: None

PATIENT
  Sex: Female
  Weight: 61.234 kg

DRUGS (1)
  1. SIMVASTATIN [Suspect]
     Indication: BLOOD CHOLESTEROL INCREASED
     Dosage: 20.0 MG
     Route: 048
     Dates: start: 20110201, end: 20110426

REACTIONS (6)
  - FATIGUE [None]
  - RASH [None]
  - SYSTEMIC LUPUS ERYTHEMATOSUS [None]
  - ARTHRALGIA [None]
  - ANTINUCLEAR ANTIBODY INCREASED [None]
  - MYALGIA [None]
